FAERS Safety Report 4722149-6 (Version None)
Quarter: 2005Q3

REPORT INFORMATION
  Report Type: 
  Country: None (occurrence: None)
  Receive Date: 20050722
  Receipt Date: 20040811
  Transmission Date: 20060218
  Serious: No
  Sender: FDA-Public Use
  Company Number: US-GLAXOSMITHKLINE-A0521829A

PATIENT
  Age: 62 Year
  Sex: Male
  Weight: 57.7 kg

DRUGS (4)
  1. AVANDIA [Suspect]
     Dosage: 4MG PER DAY
     Route: 048
  2. VITAMINS [Concomitant]
  3. CELEBREX [Concomitant]
  4. NORVASC [Concomitant]

REACTIONS (1)
  - HYPONATRAEMIA [None]
